FAERS Safety Report 23789670 (Version 3)
Quarter: 2025Q3

REPORT INFORMATION
  Report Type: Report from Study
  Country: US (occurrence: US)
  Receive Date: 20240426
  Receipt Date: 20250810
  Transmission Date: 20251021
  Serious: No
  Sender: ALEXION PHARMACEUTICALS
  Company Number: US-ALXN-202404USA001617US

PATIENT
  Age: 39 Year
  Sex: Male

DRUGS (1)
  1. STRENSIQ [Suspect]
     Active Substance: ASFOTASE ALFA
     Route: 065

REACTIONS (6)
  - Fatigue [Unknown]
  - Poor quality sleep [Unknown]
  - Libido decreased [Unknown]
  - Apathy [Unknown]
  - Blood testosterone decreased [Not Recovered/Not Resolved]
  - Blood testosterone free decreased [Unknown]

NARRATIVE: CASE EVENT DATE: 20240417
